FAERS Safety Report 7206481-2 (Version None)
Quarter: 2011Q1

REPORT INFORMATION
  Report Type: 
  Country: None (occurrence: None)
  Receive Date: 20110103
  Receipt Date: 20101227
  Transmission Date: 20110831
  Serious: Yes (Other)
  Sender: FDA-Public Use
  Company Number: US-AMGEN-USASP2010011877

PATIENT

DRUGS (2)
  1. ENBREL [Suspect]
     Indication: RHEUMATOID ARTHRITIS
     Dates: start: 20101213
  2. METHOTREXATE (TREXALL) [Concomitant]
     Dates: start: 20101023

REACTIONS (1)
  - BLOOD PRESSURE INCREASED [None]
